FAERS Safety Report 9257741 (Version 1)
Quarter: 2013Q2

REPORT INFORMATION
  Report Type: Spontaneous
  Country: US (occurrence: US)
  Receive Date: 20130426
  Receipt Date: 20130426
  Transmission Date: 20140414
  Serious: Yes (Hospitalization)
  Sender: FDA-Public Use
  Company Number: US-SANOFI-AVENTIS-2013SA042731

PATIENT
  Age: 68 Year
  Sex: Female

DRUGS (1)
  1. LANTUS [Suspect]
     Indication: TYPE 2 DIABETES MELLITUS
     Dosage: PRODUCT STARTED 1 YEAR AGO?PRODUCT END DATE 2 WEEKS AGO DOSE:35 UNIT(S)
     Route: 065

REACTIONS (1)
  - Cardiac disorder [Unknown]
